FAERS Safety Report 5863529-5 (Version None)
Quarter: 2008Q3

REPORT INFORMATION
  Report Type: 
  Country: None (occurrence: None)
  Receive Date: 20080828
  Receipt Date: 20080820
  Transmission Date: 20090109
  Serious: Yes (Other)
  Sender: FDA-Public Use
  Company Number: US-ELI_LILLY_AND_COMPANY-US200807000265

PATIENT
  Sex: Female
  Weight: 68.027 kg

DRUGS (14)
  1. BYETTA [Suspect]
     Indication: TYPE 2 DIABETES MELLITUS
     Dosage: 5 UG, 2/D
     Route: 058
     Dates: start: 20080519, end: 20080524
  2. BYETTA [Suspect]
     Dosage: 10 UG, 2/D
     Route: 058
     Dates: start: 20080524, end: 20080601
  3. BYETTA [Suspect]
     Dosage: 10 UG, DAILY (1/D)
     Route: 058
     Dates: start: 20080601, end: 20080711
  4. MICRONASE [Concomitant]
     Dosage: 30 MG, DAILY (1/D)
     Dates: end: 20080624
  5. MICRONASE [Concomitant]
     Dosage: 10 MG, DAILY (1/D)
     Dates: start: 20080624, end: 20080101
  6. MICRONASE [Concomitant]
     Dosage: 5 MG, EACH MORNING
     Dates: start: 20080101
  7. ZOCOR [Concomitant]
     Dosage: 40 MG, DAILY (1/D)
  8. DIOVAN HCT [Concomitant]
     Dosage: UNK, DAILY (1/D)
     Dates: start: 20080519
  9. NORVASC [Concomitant]
     Dosage: 5 MG, DAILY (1/D)
  10. NORVASC [Concomitant]
     Dosage: 10 MG, DAILY (1/D)
  11. ASPIRIN [Concomitant]
     Dosage: 325 MG, QOD
  12. MULTI-VITAMIN [Concomitant]
     Dosage: UNK, DAILY (1/D)
  13. VITAMIN D [Concomitant]
  14. CALCIUM WITH VITAMIN D [Concomitant]
     Dosage: 600 MG, DAILY (1/D)

REACTIONS (20)
  - ANOREXIA [None]
  - ASTHENIA [None]
  - BLOOD GLUCOSE DECREASED [None]
  - BLOOD GLUCOSE INCREASED [None]
  - CONFUSIONAL STATE [None]
  - DECREASED APPETITE [None]
  - DIZZINESS [None]
  - DYSPEPSIA [None]
  - FATIGUE [None]
  - HEADACHE [None]
  - HYPERHIDROSIS [None]
  - HYPERTENSION [None]
  - HYPOGLYCAEMIC UNCONSCIOUSNESS [None]
  - MALAISE [None]
  - NAUSEA [None]
  - SOMNOLENCE [None]
  - TREMOR [None]
  - VISION BLURRED [None]
  - VISUAL IMPAIRMENT [None]
  - WEIGHT DECREASED [None]
